FAERS Safety Report 13076714 (Version 1)
Quarter: 2016Q4

REPORT INFORMATION
  Report Type: Spontaneous
  Country: GB (occurrence: GB)
  Receive Date: 20161230
  Receipt Date: 20161230
  Transmission Date: 20170207
  Serious: Yes (Other)
  Sender: FDA-Public Use
  Company Number: GB-SHIRE-GB201620170

PATIENT
  Age: 64 Year
  Sex: Female

DRUGS (2)
  1. MEZAVANT XL [Suspect]
     Active Substance: MESALAMINE
     Dosage: 2400 MG, UNKNOWN
     Route: 048
  2. MEZAVANT XL [Suspect]
     Active Substance: MESALAMINE
     Indication: COLITIS ULCERATIVE
     Dosage: 4800 MG, UNKNOWN
     Route: 048
     Dates: start: 201608

REACTIONS (4)
  - Haemorrhage [Unknown]
  - Alopecia [Unknown]
  - Condition aggravated [Unknown]
  - Ocular hyperaemia [Unknown]

NARRATIVE: CASE EVENT DATE: 2016
